FAERS Safety Report 25802310 (Version 1)
Quarter: 2025Q3

REPORT INFORMATION
  Report Type: Spontaneous
  Country: US (occurrence: None)
  Receive Date: 20250913
  Receipt Date: 20250913
  Transmission Date: 20251021
  Serious: Yes (Disabling)
  Sender: FDA-CTU
  Company Number: None

PATIENT
  Age: 77 Year
  Sex: Female
  Weight: 83.25 kg

DRUGS (12)
  1. PERIGUARD [Suspect]
     Active Substance: PETROLATUM
     Indication: Skin irritation
     Route: 061
     Dates: start: 20250912, end: 20250912
  2. PERIGUARD [Suspect]
     Active Substance: PETROLATUM
     Indication: Skin burning sensation
  3. PERIGUARD [Suspect]
     Active Substance: PETROLATUM
     Indication: Skin burning sensation
  4. OFEV [Concomitant]
     Active Substance: NINTEDANIB
  5. METROPOLO [Concomitant]
  6. AMOXICILLIN [Concomitant]
     Active Substance: AMOXICILLIN
  7. DOXYCYCLINE [Concomitant]
     Active Substance: DOXYCYCLINE
  8. OXYGEN [Concomitant]
     Active Substance: OXYGEN
  9. MAGNESIUM [Concomitant]
     Active Substance: MAGNESIUM
  10. VITAMIN D3 [Concomitant]
     Active Substance: CHOLECALCIFEROL
  11. JWH-018 [Concomitant]
     Active Substance: JWH-018
  12. x LEAR NASAL SPRAY [Concomitant]

REACTIONS (2)
  - Genital burning sensation [None]
  - Genital pain [None]

NARRATIVE: CASE EVENT DATE: 20250912
